FAERS Safety Report 14503019 (Version 1)
Quarter: 2018Q1

REPORT INFORMATION
  Report Type: Spontaneous
  Country: US (occurrence: US)
  Receive Date: 20180207
  Receipt Date: 20180207
  Transmission Date: 20180509
  Serious: Yes (Other)
  Sender: FDA-Public Use
  Company Number: None

PATIENT
  Age: 70 Year
  Sex: Female

DRUGS (16)
  1. AZITHROMYCIN ANHYDROUS. [Concomitant]
     Active Substance: AZITHROMYCIN ANHYDROUS
  2. BUPROPION. [Concomitant]
     Active Substance: BUPROPION
  3. PROMETHAZINE [Concomitant]
     Active Substance: PROMETHAZINE\PROMETHAZINE HYDROCHLORIDE
  4. CHLORZOXZONE [Concomitant]
  5. CIPROFLOXACIN. [Concomitant]
     Active Substance: CIPROFLOXACIN
  6. TEMAZEPAM. [Concomitant]
     Active Substance: TEMAZEPAM
  7. ARIPIPRAZOLE. [Concomitant]
     Active Substance: ARIPIPRAZOLE
  8. ATORVASTATIN [Concomitant]
     Active Substance: ATORVASTATIN
  9. CLOTRIMAZOLE/BETHASONE [Concomitant]
  10. PAROXETINE. [Concomitant]
     Active Substance: PAROXETINE
  11. URSODIOL. [Concomitant]
     Active Substance: URSODIOL
  12. FENTANYL. [Concomitant]
     Active Substance: FENTANYL
  13. IBRANCE [Suspect]
     Active Substance: PALBOCICLIB
     Indication: NEOPLASM MALIGNANT
     Route: 048
     Dates: start: 20160816
  14. LIDOCAINE. [Concomitant]
     Active Substance: LIDOCAINE
  15. OXYCODONE [Concomitant]
     Active Substance: OXYCODONE
  16. TOBRAMYCIN AND DEXAMETHASONE [Concomitant]
     Active Substance: DEXAMETHASONE\TOBRAMYCIN

REACTIONS (1)
  - Drug dose omission [None]
